FAERS Safety Report 8290487 (Version 5)
Quarter: 2013Q4

REPORT INFORMATION
  Report Type: Spontaneous
  Country: US (occurrence: None)
  Receive Date: 20111122
  Receipt Date: 20131226
  Transmission Date: 20140711
  Serious: No
  Sender: FDA-Public Use
  Company Number: PHEH2011US01485

PATIENT
  Age: 71 Year
  Sex: Male
  Weight: 68.9 kg

DRUGS (19)
  1. GILENYA [Suspect]
     Indication: MULTIPLE SCLEROSIS
     Dosage: 0.5 MG, QD, ORAL
     Route: 048
     Dates: start: 20110708, end: 20110815
  2. ADVIL (MEFENAMIC ACID) [Concomitant]
  3. FLONASE (FLUTICASONE PROPIONATE) [Concomitant]
  4. SINGULAIR (MONTELUKAST) 10MG [Concomitant]
  5. DIOVAN HCT (HYDROCHLOROTHIAZIDE, VALSARTAN) [Concomitant]
  6. HYDROCHLOROTHIAZIDE W/TRIAMTERENE (HYDROCHLOROTHIAZIDE, TRIAMTERENE) [Concomitant]
  7. NEXIUM (ESOMEPRAZOLE MAGNESIUM) [Concomitant]
  8. BACLOFEN (BACLOFEN) [Concomitant]
  9. MULTIVITAMINS (ASCORBIC ACID, ERGOCALCIFEROL, FOLIC ACID, NICOTINAMIDE, PANTHENOL, RETINOL, RIBOFLAVIN, THIAMINE HYDROCHLORIDE) [Concomitant]
  10. PRISTIQ (DESVENLAFAXINE SUCCINATE) [Concomitant]
  11. CITRACAL (CALCIUM CITRATE) [Concomitant]
  12. PULMICORT (BUDESONIDE) [Concomitant]
  13. ASPIRIN (ACETYLSALICYLIC ACID) [Concomitant]
  14. MIRALAX (MACROGOL) [Concomitant]
  15. VERAPAMIL (VERAPAMIL) [Concomitant]
  16. COLACE [Concomitant]
  17. VITAMIN D (ERGOCALCIFEROL) [Concomitant]
  18. ZOLPIDEM [Concomitant]
  19. AMPYRA (FAMPRIDINE) [Concomitant]

REACTIONS (5)
  - Fatigue [None]
  - Asthenia [None]
  - Dizziness [None]
  - Abasia [None]
  - Drug ineffective [None]
